FAERS Safety Report 22693436 (Version 9)
Quarter: 2023Q4

REPORT INFORMATION
  Report Type: Spontaneous
  Country: US (occurrence: US)
  Receive Date: 20230711
  Receipt Date: 20231013
  Transmission Date: 20240110
  Serious: No
  Sender: FDA-Public Use
  Company Number: US-PFIZER INC-202300213590

PATIENT
  Age: 9 Year
  Sex: Male
  Weight: 17.15 kg

DRUGS (3)
  1. GENOTROPIN [Suspect]
     Active Substance: SOMATROPIN
     Indication: Growth hormone deficiency
     Dosage: 0.8 MG, DAILY
     Route: 058
     Dates: start: 20230319
  2. GENOTROPIN [Suspect]
     Active Substance: SOMATROPIN
     Dosage: UNK (0.9 UNKNOWN UNITS, ONCE A NIGHT BEFORE BED)
  3. GENOTROPIN [Suspect]
     Active Substance: SOMATROPIN
     Dosage: UNK

REACTIONS (9)
  - Accidental exposure to product [Unknown]
  - Product storage error [Unknown]
  - Poor quality device used [Unknown]
  - Product physical issue [Unknown]
  - Exposure via skin contact [Unknown]
  - Product solubility abnormal [Unknown]
  - Device leakage [Not Recovered/Not Resolved]
  - Device breakage [Unknown]
  - Device delivery system issue [Unknown]

NARRATIVE: CASE EVENT DATE: 20230603
